FAERS Safety Report 6405677-7 (Version None)
Quarter: 2009Q4

REPORT INFORMATION
  Report Type: 
  Country: None (occurrence: None)
  Receive Date: 20091019
  Receipt Date: 20091015
  Transmission Date: 20100525
  Serious: Yes (Other)
  Sender: FDA-Public Use
  Company Number: B0598508A

PATIENT
  Age: 76 Year
  Sex: Male

DRUGS (1)
  1. VENTOLIN [Suspect]
     Dosage: 5MGML UNKNOWN
     Route: 055
     Dates: start: 20051212, end: 20051216

REACTIONS (1)
  - TACHYPNOEA [None]
